FAERS Safety Report 9771171 (Version 1)
Quarter: 2013Q4

REPORT INFORMATION
  Report Type: Spontaneous
  Country: US (occurrence: US)
  Receive Date: 20131218
  Receipt Date: 20131218
  Transmission Date: 20140711
  Serious: No
  Sender: FDA-Public Use
  Company Number: US-PFIZER INC-2013357851

PATIENT
  Sex: 0

DRUGS (1)
  1. XALKORI [Suspect]
     Dosage: 1 DF, 2X/DAY, ONE IN THE MORNING AND ONE AT NIGHT

REACTIONS (2)
  - Abdominal pain lower [Unknown]
  - Constipation [Unknown]
